FAERS Safety Report 9657235 (Version 1)
Quarter: 2013Q4

REPORT INFORMATION
  Report Type: Spontaneous
  Country: US (occurrence: US)
  Receive Date: 20131030
  Receipt Date: 20131030
  Transmission Date: 20140711
  Serious: Yes (Other)
  Sender: FDA-Public Use
  Company Number: US-ELI_LILLY_AND_COMPANY-US201310008377

PATIENT
  Age: 60 Year
  Sex: Male

DRUGS (2)
  1. EFFIENT [Suspect]
     Indication: ACUTE CORONARY SYNDROME
     Dosage: 10 MG, UNK
     Route: 048
     Dates: start: 20130604
  2. ASA [Concomitant]
     Indication: ACUTE CORONARY SYNDROME
     Dosage: 81 MG, UNK
     Route: 048
     Dates: start: 20130604

REACTIONS (1)
  - Chest pain [Unknown]
